FAERS Safety Report 11278964 (Version 2)
Quarter: 2015Q3

REPORT INFORMATION
  Report Type: Spontaneous
  Country: US (occurrence: US)
  Receive Date: 20150717
  Receipt Date: 20150917
  Transmission Date: 20151125
  Serious: Yes (Hospitalization, Other)
  Sender: FDA-Public Use
  Company Number: US-BAYER-2015-373667

PATIENT
  Age: 59 Year
  Sex: Female
  Weight: 84 kg

DRUGS (10)
  1. AVELOX [Suspect]
     Active Substance: MOXIFLOXACIN HYDROCHLORIDE
     Indication: PNEUMONIA
     Dosage: UNK
     Dates: start: 2011, end: 2011
  2. NEURONTIN [Suspect]
     Active Substance: GABAPENTIN
     Indication: BONE PAIN
  3. OXYCODONE [Suspect]
     Active Substance: OXYCODONE
     Indication: PAIN
     Dosage: 10 MG, TID
  4. SOMA [Concomitant]
     Active Substance: CARISOPRODOL
  5. METFORMIN [Concomitant]
     Active Substance: METFORMIN HYDROCHLORIDE
     Dosage: 2000 MG, QD
  6. XANAX [Suspect]
     Active Substance: ALPRAZOLAM
  7. NEURONTIN [Suspect]
     Active Substance: GABAPENTIN
     Indication: MYALGIA
     Dosage: UNK
     Dates: start: 2011
  8. VITAMIN B12 [Concomitant]
     Active Substance: CYANOCOBALAMIN
     Route: 030
  9. VITAMIN B3 [Concomitant]
     Active Substance: NIACIN
  10. PLAVIX [Concomitant]
     Active Substance: CLOPIDOGREL BISULFATE
     Dosage: 75 MG, QD

REACTIONS (8)
  - Hypoaesthesia [None]
  - Adverse drug reaction [None]
  - Paraesthesia [None]
  - Facial pain [None]
  - Cerebrovascular accident [None]
  - Cerebrovascular accident [None]
  - Cerebrovascular accident [None]
  - Limb discomfort [None]

NARRATIVE: CASE EVENT DATE: 201103
